FAERS Safety Report 20678580 (Version 2)
Quarter: 2022Q2

REPORT INFORMATION
  Report Type: Report from Study
  Country: US (occurrence: US)
  Receive Date: 20220406
  Receipt Date: 20220411
  Transmission Date: 20220721
  Serious: Yes (Congenital Anomaly)
  Sender: FDA-Public Use
  Company Number: US-ViiV Healthcare Limited-US2022GSK057757

PATIENT

DRUGS (2)
  1. DOLUTEGRAVIR [Suspect]
     Active Substance: DOLUTEGRAVIR
     Indication: HIV infection
     Dosage: UNK
     Route: 064
  2. LEXAPRO [Concomitant]
     Active Substance: ESCITALOPRAM OXALATE
     Indication: Major depression
     Route: 064

REACTIONS (2)
  - Atrial septal defect [Unknown]
  - Supraventricular extrasystoles [Unknown]
